FAERS Safety Report 8923324 (Version 1)
Quarter: 2012Q4

REPORT INFORMATION
  Report Type: Spontaneous
  Country: US (occurrence: None)
  Receive Date: 20121115
  Receipt Date: 20121115
  Transmission Date: 20130627
  Serious: No
  Sender: FDA-Public Use
  Company Number: None

PATIENT
  Age: 41 Year
  Sex: Female

DRUGS (2)
  1. ITRANAZOLE [Suspect]
     Dosage: Approx
     Dates: start: 20100601, end: 20100614
  2. ZITHROMAX [Suspect]
     Dosage: Approx
     Dates: start: 20100816, end: 20100820

REACTIONS (14)
  - Ischaemic hepatitis [None]
  - Arteriosclerosis coronary artery [None]
  - Ventricular hypertrophy [None]
  - Pleural effusion [None]
  - Hepatic necrosis [None]
  - Cardiogenic shock [None]
  - Tachycardia [None]
  - Drug-induced liver injury [None]
  - Aspartate aminotransferase increased [None]
  - Alanine aminotransferase increased [None]
  - Night sweats [None]
  - Sputum discoloured [None]
  - Joint swelling [None]
  - Oedema peripheral [None]
